FAERS Safety Report 20696625 (Version 1)
Quarter: 2022Q2

REPORT INFORMATION
  Report Type: Spontaneous
  Country: CA (occurrence: CA)
  Receive Date: 20220411
  Receipt Date: 20220411
  Transmission Date: 20220721
  Serious: Yes (Other)
  Sender: FDA-Public Use
  Company Number: CA-ALLERGAN-2211092US

PATIENT
  Age: 78 Year
  Sex: Male

DRUGS (6)
  1. ACITRETIN [Suspect]
     Active Substance: ACITRETIN
     Indication: Product used for unknown indication
     Dosage: UNK
     Route: 048
  2. HUMIRA [Suspect]
     Active Substance: ADALIMUMAB
     Indication: Psoriasis
     Dosage: UNK
     Route: 058
  3. SKYRIZI [Suspect]
     Active Substance: RISANKIZUMAB-RZAA
     Indication: Product used for unknown indication
     Dosage: UNK
     Route: 058
  4. ALITRETINOIN [Suspect]
     Active Substance: ALITRETINOIN
     Indication: Product used for unknown indication
     Dosage: UNK
     Route: 065
  5. Salicylic Acid in clobetasol [Concomitant]
  6. BRODALUMAB [Concomitant]
     Active Substance: BRODALUMAB

REACTIONS (4)
  - Bladder cancer [Not Recovered/Not Resolved]
  - Acrokeratosis paraneoplastica [Unknown]
  - Drug intolerance [Unknown]
  - Psoriasis [Unknown]
